FAERS Safety Report 9500776 (Version 2)
Quarter: 2014Q1

REPORT INFORMATION
  Report Type: Report from Study
  Country: JP (occurrence: JP)
  Receive Date: 20130905
  Receipt Date: 20140101
  Transmission Date: 20141002
  Serious: Yes (Other)
  Sender: FDA-Public Use
  Company Number: JP-ROCHE-1269649

PATIENT
  Age: 74 Year
  Sex: Male

DRUGS (19)
  1. METHOXY POLYETHYLENE GLYCOL-EPOETIN BETA [Suspect]
     Indication: NEPHROGENIC ANAEMIA
     Route: 058
     Dates: start: 20120509
  2. METHOXY POLYETHYLENE GLYCOL-EPOETIN BETA [Suspect]
     Indication: NEPHROGENIC ANAEMIA
     Route: 058
     Dates: start: 201308, end: 201308
  3. METHOXY POLYETHYLENE GLYCOL-EPOETIN BETA [Suspect]
     Indication: NEPHROGENIC ANAEMIA
     Route: 058
     Dates: start: 201309, end: 201309
  4. METHOXY POLYETHYLENE GLYCOL-EPOETIN BETA [Suspect]
     Indication: NEPHROGENIC ANAEMIA
     Dosage: 100MCG AND 150MCG ONCE/MONTH
     Route: 058
     Dates: start: 201310, end: 201310
  5. LASIX [Concomitant]
     Route: 048
  6. ZYLORIC [Concomitant]
     Route: 048
  7. ARTIST [Concomitant]
     Route: 048
  8. ADALAT CR [Concomitant]
     Route: 048
  9. PREMINENT [Concomitant]
     Route: 048
  10. PANALDINE [Concomitant]
     Route: 048
  11. LIPITOR [Concomitant]
     Route: 048
  12. BAYASPIRIN [Concomitant]
     Route: 048
  13. MICARDIS [Concomitant]
     Route: 048
  14. HERBESSER R [Concomitant]
     Route: 048
  15. ALOSENN [Concomitant]
     Route: 048
  16. KALIMATE [Concomitant]
     Route: 048
  17. D-SORBITOL [Concomitant]
     Route: 048
  18. ALDACTONE A [Concomitant]
     Route: 048
     Dates: start: 20121107
  19. VITANEURIN [Concomitant]
     Route: 048
     Dates: start: 20130508

REACTIONS (4)
  - Bone marrow failure [Unknown]
  - Renal impairment [Not Recovered/Not Resolved]
  - Hypertension [Unknown]
  - Platelet count decreased [Unknown]
